FAERS Safety Report 9200922 (Version 6)
Quarter: 2014Q2

REPORT INFORMATION
  Report Type: Spontaneous
  Country: BR (occurrence: BR)
  Receive Date: 20130401
  Receipt Date: 20140623
  Transmission Date: 20141212
  Serious: Yes (Other)
  Sender: FDA-Public Use
  Company Number: BR-JNJFOC-20121213570

PATIENT
  Age: 59 Year
  Sex: Female
  Weight: 83 kg

DRUGS (54)
  1. HALDOL [Suspect]
     Indication: ANXIETY
     Route: 048
     Dates: end: 20130522
  2. HALDOL [Suspect]
     Indication: ANXIETY
     Route: 048
     Dates: start: 2005, end: 20131023
  3. HALDOL [Suspect]
     Indication: ANXIETY
     Route: 048
  4. HALDOL [Suspect]
     Indication: ANXIETY
     Route: 048
     Dates: start: 2011
  5. HALDOL [Suspect]
     Indication: ANXIETY
     Dosage: 1 TABLET/DAY IN THE MORNING
     Route: 048
     Dates: start: 201311
  6. HALDOL [Suspect]
     Indication: ANXIETY
     Route: 048
     Dates: start: 20131031, end: 20131125
  7. HALDOL [Suspect]
     Indication: ANXIETY
     Route: 048
     Dates: start: 2009, end: 201211
  8. HALDOL [Suspect]
     Indication: AGITATION
     Route: 048
  9. HALDOL [Suspect]
     Indication: AGITATION
     Route: 048
     Dates: start: 20131031, end: 20131125
  10. HALDOL [Suspect]
     Indication: AGITATION
     Route: 048
     Dates: end: 20130522
  11. HALDOL [Suspect]
     Indication: AGITATION
     Route: 048
     Dates: start: 2009, end: 201211
  12. HALDOL [Suspect]
     Indication: AGITATION
     Dosage: 1 TABLET/DAY IN THE MORNING
     Route: 048
     Dates: start: 201311
  13. HALDOL [Suspect]
     Indication: AGITATION
     Route: 048
     Dates: start: 2005, end: 20131023
  14. HALDOL [Suspect]
     Indication: AGITATION
     Route: 048
     Dates: start: 2011
  15. HALDOL [Suspect]
     Indication: DEPRESSION
     Route: 048
     Dates: start: 2009, end: 201211
  16. HALDOL [Suspect]
     Indication: DEPRESSION
     Route: 048
  17. HALDOL [Suspect]
     Indication: DEPRESSION
     Dosage: 1 TABLET/DAY IN THE MORNING
     Route: 048
     Dates: start: 201311
  18. HALDOL [Suspect]
     Indication: DEPRESSION
     Route: 048
     Dates: start: 2005, end: 20131023
  19. HALDOL [Suspect]
     Indication: DEPRESSION
     Route: 048
     Dates: start: 2011
  20. HALDOL [Suspect]
     Indication: DEPRESSION
     Route: 048
     Dates: end: 20130522
  21. HALDOL [Suspect]
     Indication: DEPRESSION
     Route: 048
     Dates: start: 20131031, end: 20131125
  22. HALDOL [Suspect]
     Indication: NERVOUSNESS
     Route: 048
     Dates: start: 2011
  23. HALDOL [Suspect]
     Indication: NERVOUSNESS
     Route: 048
     Dates: start: 2005, end: 20131023
  24. HALDOL [Suspect]
     Indication: NERVOUSNESS
     Route: 048
  25. HALDOL [Suspect]
     Indication: NERVOUSNESS
     Route: 048
     Dates: start: 20131031, end: 20131125
  26. HALDOL [Suspect]
     Indication: NERVOUSNESS
     Route: 048
     Dates: start: 2009, end: 201211
  27. HALDOL [Suspect]
     Indication: NERVOUSNESS
     Dosage: 1 TABLET/DAY IN THE MORNING
     Route: 048
     Dates: start: 201311
  28. HALDOL [Suspect]
     Indication: NERVOUSNESS
     Route: 048
     Dates: end: 20130522
  29. HALDOL [Suspect]
     Indication: AGGRESSION
     Route: 048
     Dates: start: 2011
  30. HALDOL [Suspect]
     Indication: AGGRESSION
     Dosage: 1 TABLET/DAY IN THE MORNING
     Route: 048
     Dates: start: 201311
  31. HALDOL [Suspect]
     Indication: AGGRESSION
     Route: 048
     Dates: start: 20131031, end: 20131125
  32. HALDOL [Suspect]
     Indication: AGGRESSION
     Route: 048
     Dates: end: 20130522
  33. HALDOL [Suspect]
     Indication: AGGRESSION
     Route: 048
  34. HALDOL [Suspect]
     Indication: AGGRESSION
     Route: 048
     Dates: start: 2009, end: 201211
  35. HALDOL [Suspect]
     Indication: AGGRESSION
     Route: 048
     Dates: start: 2005, end: 20131023
  36. HALDOL [Suspect]
     Indication: NEGATIVE THOUGHTS
     Route: 048
     Dates: start: 2005, end: 20131023
  37. HALDOL [Suspect]
     Indication: NEGATIVE THOUGHTS
     Route: 048
     Dates: start: 2011
  38. HALDOL [Suspect]
     Indication: NEGATIVE THOUGHTS
     Dosage: 1 TABLET/DAY IN THE MORNING
     Route: 048
     Dates: start: 201311
  39. HALDOL [Suspect]
     Indication: NEGATIVE THOUGHTS
     Route: 048
     Dates: start: 20131031, end: 20131125
  40. HALDOL [Suspect]
     Indication: NEGATIVE THOUGHTS
     Route: 048
     Dates: end: 20130522
  41. HALDOL [Suspect]
     Indication: NEGATIVE THOUGHTS
     Route: 048
  42. HALDOL [Suspect]
     Indication: NEGATIVE THOUGHTS
     Route: 048
     Dates: start: 2009, end: 201211
  43. SERTRALINE [Concomitant]
     Indication: AGITATION
     Route: 065
     Dates: start: 201309
  44. SERTRALINE [Concomitant]
     Indication: AGITATION
     Route: 065
     Dates: start: 20131013, end: 20131030
  45. SERTRALINE [Concomitant]
     Indication: DEPRESSION
     Route: 065
     Dates: start: 20131013, end: 20131030
  46. SERTRALINE [Concomitant]
     Indication: DEPRESSION
     Route: 065
     Dates: start: 201309
  47. RIVOTRIL [Concomitant]
     Indication: AGITATION
     Route: 065
     Dates: start: 2006
  48. RIVOTRIL [Concomitant]
     Indication: RELAXATION THERAPY
     Route: 065
     Dates: start: 2006
  49. RIVOTRIL [Concomitant]
     Indication: SLEEP DISORDER THERAPY
     Route: 065
     Dates: start: 2006
  50. RIVOTRIL [Concomitant]
     Indication: DEPRESSION
     Route: 065
     Dates: start: 2006
  51. AMITRIPTYLINE [Concomitant]
     Indication: DEPRESSION
     Route: 065
     Dates: start: 2008
  52. ENALAPRIL [Concomitant]
     Indication: HYPERTENSION
     Route: 065
     Dates: start: 2013
  53. ATENOLOL [Concomitant]
     Indication: ARRHYTHMIA
     Route: 065
     Dates: start: 2013
  54. ATENOLOL [Concomitant]
     Indication: HYPERTENSION
     Route: 065
     Dates: start: 2013

REACTIONS (32)
  - Intentional self-injury [Unknown]
  - Depression [Not Recovered/Not Resolved]
  - Heart rate increased [Unknown]
  - Emotional distress [Not Recovered/Not Resolved]
  - Insomnia [Unknown]
  - Aggression [Not Recovered/Not Resolved]
  - Aphthous stomatitis [Not Recovered/Not Resolved]
  - Dysgeusia [Not Recovered/Not Resolved]
  - Malaise [Not Recovered/Not Resolved]
  - Agitation [Not Recovered/Not Resolved]
  - Weight increased [Not Recovered/Not Resolved]
  - Headache [Not Recovered/Not Resolved]
  - Muscle spasms [Unknown]
  - Medication error [Unknown]
  - Chest discomfort [Unknown]
  - Pain [Not Recovered/Not Resolved]
  - Anxiety [Not Recovered/Not Resolved]
  - Chest pain [Not Recovered/Not Resolved]
  - Drug ineffective [Not Recovered/Not Resolved]
  - Restlessness [Not Recovered/Not Resolved]
  - Off label use [Unknown]
  - Treatment noncompliance [Unknown]
  - Musculoskeletal stiffness [Not Recovered/Not Resolved]
  - Palpitations [Not Recovered/Not Resolved]
  - Feeling abnormal [Not Recovered/Not Resolved]
  - Fatigue [Unknown]
  - Nausea [Unknown]
  - Hyperglycaemia [Unknown]
  - Negative thoughts [Not Recovered/Not Resolved]
  - Phobia [Unknown]
  - Myalgia [Not Recovered/Not Resolved]
  - Self-medication [Unknown]
